FAERS Safety Report 9370308 (Version 3)
Quarter: 2013Q4

REPORT INFORMATION
  Report Type: Report from Study
  Country: NO (occurrence: NO)
  Receive Date: 20130626
  Receipt Date: 20131126
  Transmission Date: 20140711
  Serious: Yes (Hospitalization)
  Sender: FDA-Public Use
  Company Number: NO-VERTEX PHARMACEUTICALS INC-2013-005202

PATIENT
  Age: 57 Year
  Sex: Male
  Weight: 87.3 kg

DRUGS (14)
  1. BLINDED PRE-TREATMENT [Suspect]
     Indication: HEPATITIS C
     Dosage: 3 DF, QD
     Route: 048
     Dates: start: 20121010, end: 20130102
  2. BLINDED TMC435 [Suspect]
     Indication: HEPATITIS C
     Dosage: 3 DF, QD
     Route: 048
     Dates: start: 20121010, end: 20130102
  3. BLINDED VX-950 (TELAPREVIR) [Suspect]
     Indication: HEPATITIS C
     Dosage: 3 DF, QD
     Route: 048
     Dates: start: 20121010, end: 20130102
  4. RIBAVIRIN [Suspect]
     Indication: HEPATITIS C
     Dosage: DOSAGE FORM: TABLET, 3 DOSES IN THE MORNING AND 3 DOSES IN THE EVENING
     Route: 048
     Dates: start: 20121010, end: 20130507
  5. PEGINTERFERON ALFA 2A [Suspect]
     Indication: HEPATITIS C
     Dosage: DOSAGE FORM: INJECTION
     Route: 058
     Dates: start: 20121010, end: 20130501
  6. IMOVANE [Concomitant]
     Indication: INSOMNIA
     Dosage: 7.5 MG, QD
     Route: 048
  7. ATOMOXETINE [Concomitant]
     Indication: ATTENTION DEFICIT/HYPERACTIVITY DISORDER
     Dosage: STARTED PRE-TRIAL
  8. IBUX [Concomitant]
     Indication: HEADACHE
     Dosage: 200 UNK, UNK
  9. ENALAPRIL [Concomitant]
     Indication: HYPERTENSION
     Dosage: 20 MG, QD
     Route: 048
  10. ATARAX [Concomitant]
     Dosage: 20 MG, QD
     Route: 048
     Dates: start: 20121204
  11. EURAX [Concomitant]
     Dosage: 10 ML, PRN
     Route: 061
     Dates: start: 20121220, end: 20130228
  12. VENTOLINE INHALER [Concomitant]
     Dosage: 0.1 MG, PRN
     Route: 055
     Dates: start: 20130129
  13. OMNIC [Concomitant]
     Indication: BENIGN PROSTATIC HYPERPLASIA
     Dosage: 0.4 MG, QD
     Route: 048
     Dates: start: 20130206
  14. SOBRIL [Concomitant]
     Dosage: 15 MG, QD
     Route: 048
     Dates: start: 20130226

REACTIONS (1)
  - Impetigo [Recovered/Resolved]
